FAERS Safety Report 20783312 (Version 2)
Quarter: 2022Q2

REPORT INFORMATION
  Report Type: Spontaneous
  Country: US (occurrence: US)
  Receive Date: 20220504
  Receipt Date: 20220526
  Transmission Date: 20220721
  Serious: No
  Sender: FDA-Public Use
  Company Number: US-PFIZER INC-202200133349

PATIENT
  Age: 61 Year
  Sex: Female

DRUGS (1)
  1. XELJANZ [Suspect]
     Active Substance: TOFACITINIB CITRATE
     Dosage: 5 MG, 2X/DAY (10 AM AND 10 PM)
     Dates: start: 20211226, end: 20220513

REACTIONS (4)
  - Product dose omission in error [Unknown]
  - Dyspepsia [Unknown]
  - Abdominal pain [Unknown]
  - Faeces hard [Unknown]
